FAERS Safety Report 18451542 (Version 1)
Quarter: 2020Q4

REPORT INFORMATION
  Report Type: Spontaneous
  Country: US (occurrence: US)
  Receive Date: 20201102
  Receipt Date: 20201102
  Transmission Date: 20210114
  Serious: Yes (Hospitalization, Other)
  Sender: FDA-Public Use
  Company Number: US-CIPLA LTD.-2020US07757

PATIENT

DRUGS (2)
  1. TADALAFIL. [Suspect]
     Active Substance: TADALAFIL
     Dosage: UNK, TOOK AN EXTRA DOSE PRIOR TO SEXUAL INTERCOURSE IN THE EVENING
     Route: 065
  2. TADALAFIL. [Suspect]
     Active Substance: TADALAFIL
     Indication: URINARY RETENTION
     Dosage: UNK, DAILY
     Route: 065

REACTIONS (2)
  - Extra dose administered [Unknown]
  - Cerebral haemorrhage [Unknown]
